FAERS Safety Report 15833192 (Version 2)
Quarter: 2019Q1

REPORT INFORMATION
  Report Type: Report from Study
  Country: MX (occurrence: MX)
  Receive Date: 20190116
  Receipt Date: 20190124
  Transmission Date: 20190417
  Serious: Yes (Hospitalization, Other)
  Sender: FDA-Public Use
  Company Number: MX-SHIRE-MX201901355

PATIENT

DRUGS (1)
  1. ELAPRASE [Suspect]
     Active Substance: IDURSULFASE
     Indication: PRODUCT USED FOR UNKNOWN INDICATION
     Dosage: 6MG/3ML, EVERY 8 DAYS
     Route: 065

REACTIONS (2)
  - Inappropriate schedule of product administration [Unknown]
  - Femur fracture [Unknown]
